FAERS Safety Report 6844981-5 (Version None)
Quarter: 2010Q3

REPORT INFORMATION
  Report Type: 
  Country: None (occurrence: None)
  Receive Date: 20100715
  Receipt Date: 20100702
  Transmission Date: 20110219
  Serious: Yes (Hospitalization)
  Sender: FDA-Public Use
  Company Number: FR-GENENTECH-303874

PATIENT
  Sex: Male
  Weight: 80 kg

DRUGS (6)
  1. RITUXIMAB [Suspect]
     Indication: MANTLE CELL LYMPHOMA
     Dosage: 700 MG, UNK
     Route: 065
     Dates: start: 20100311, end: 20100331
  2. OXALIPLATIN [Suspect]
     Indication: MANTLE CELL LYMPHOMA
     Dosage: 240 MG, UNK
     Route: 065
     Dates: start: 20100311, end: 20100331
  3. CYTARABINE [Suspect]
     Indication: MANTLE CELL LYMPHOMA
     Dosage: 7.4 G, UNK
     Route: 065
     Dates: start: 20100311, end: 20100331
  4. DEXAMETHASONE [Suspect]
     Indication: MANTLE CELL LYMPHOMA
     Dosage: 160 MG, UNK
     Route: 065
     Dates: start: 20100311, end: 20100331
  5. BACTRIM [Concomitant]
     Indication: INFECTION PROPHYLAXIS
     Dosage: UNK
     Route: 048
     Dates: start: 20100311
  6. ZELITREX [Concomitant]
     Indication: ANTIVIRAL PROPHYLAXIS
     Dosage: UNK
     Route: 048
     Dates: start: 20100311

REACTIONS (5)
  - ANAEMIA [None]
  - GASTRIC ULCER HAEMORRHAGE [None]
  - MELAENA [None]
  - PLATELET COUNT DECREASED [None]
  - PYREXIA [None]
